FAERS Safety Report 9058833 (Version 2)
Quarter: 2013Q1

REPORT INFORMATION
  Report Type: Report from Study
  Country: BR (occurrence: BR)
  Receive Date: 20130204
  Receipt Date: 20130326
  Transmission Date: 20140127
  Serious: Yes (Hospitalization)
  Sender: FDA-Public Use
  Company Number: BR-ABBOTT-13P-020-1043294-00

PATIENT
  Sex: Male
  Weight: 80 kg

DRUGS (15)
  1. HUMIRA [Suspect]
     Indication: CROHN^S DISEASE
     Dosage: WEEK 0
     Route: 058
     Dates: start: 2012
  2. HUMIRA [Suspect]
     Dosage: WEEK 2
     Route: 058
  3. HUMIRA [Suspect]
     Route: 058
     Dates: end: 20121214
  4. HUMIRA [Suspect]
     Route: 058
     Dates: start: 201301
  5. OMEPRAZOLE [Concomitant]
     Indication: CROHN^S DISEASE
     Route: 048
     Dates: start: 2012
  6. AZATHIOPRINE [Concomitant]
     Indication: CROHN^S DISEASE
     Route: 048
     Dates: start: 2012
  7. POTASSIUM CHLORIDE [Concomitant]
     Indication: VITAMIN SUPPLEMENTATION
     Route: 048
     Dates: start: 201212
  8. CALCIUM CARBONATE [Concomitant]
     Indication: VITAMIN SUPPLEMENTATION
     Route: 048
     Dates: start: 201212
  9. SODIUM PHOSPHATE [Concomitant]
     Indication: VITAMIN SUPPLEMENTATION
     Route: 048
     Dates: start: 201212
  10. B COMPLEX [Concomitant]
     Indication: VITAMIN SUPPLEMENTATION
     Route: 048
     Dates: start: 201212
  11. ZINC SULPHATE [Concomitant]
     Indication: VITAMIN SUPPLEMENTATION
     Route: 048
     Dates: start: 201212
  12. VITAMIN C [Concomitant]
     Indication: VITAMIN SUPPLEMENTATION
     Route: 048
     Dates: start: 201212
  13. POLYVITAMIN [Concomitant]
     Indication: VITAMIN SUPPLEMENTATION
     Route: 048
     Dates: start: 201212
  14. NORIPURUM [Concomitant]
     Indication: VITAMIN SUPPLEMENTATION
     Dosage: UNIT DOSE: 1 INJECTION
     Dates: start: 201212
  15. VITAMIN B12 [Concomitant]
     Indication: VITAMIN SUPPLEMENTATION
     Dosage: UNIT DOSE: 1 INJECTION
     Route: 042
     Dates: start: 201212

REACTIONS (5)
  - Abdominal distension [Recovered/Resolved]
  - Hypophagia [Recovered/Resolved]
  - Weight decreased [Recovered/Resolved]
  - Abasia [Unknown]
  - Abdominal pain [Recovered/Resolved]
